FAERS Safety Report 18254620 (Version 2)
Quarter: 2020Q3

REPORT INFORMATION
  Report Type: Spontaneous
  Country: FR (occurrence: FR)
  Receive Date: 20200910
  Receipt Date: 20200917
  Transmission Date: 20201103
  Serious: Yes (Other)
  Sender: FDA-Public Use
  Company Number: FR-REGENERON PHARMACEUTICALS, INC.-2020-75327

PATIENT

DRUGS (3)
  1. EYLEA [Suspect]
     Active Substance: AFLIBERCEPT
     Dosage: 1 DF, ONCE; 3RD INJECTION; BILATERAL
     Route: 031
     Dates: start: 20200828, end: 20200828
  2. EYLEA [Suspect]
     Active Substance: AFLIBERCEPT
     Indication: DIABETIC RETINAL OEDEMA
     Dosage: 1 DF, ONCE; 1ST INJECTION
     Route: 031
     Dates: start: 20200624, end: 20200624
  3. EYLEA [Suspect]
     Active Substance: AFLIBERCEPT
     Dosage: 1 DF, ONCE; 2ND INJECTION
     Route: 031
     Dates: start: 20200724, end: 20200724

REACTIONS (7)
  - Blindness [Unknown]
  - Scintillating scotoma [Unknown]
  - Syringe issue [Unknown]
  - Amaurosis [Recovered/Resolved]
  - Device difficult to use [Unknown]
  - Ocular hypertension [Unknown]
  - Eye pain [Unknown]

NARRATIVE: CASE EVENT DATE: 20200724
